FAERS Safety Report 14829255 (Version 6)
Quarter: 2020Q1

REPORT INFORMATION
  Report Type: Spontaneous
  Country: US (occurrence: US)
  Receive Date: 20180430
  Receipt Date: 20200311
  Transmission Date: 20200409
  Serious: Yes (Other)
  Sender: FDA-Public Use
  Company Number: US-ASTRAZENECA-2018SE51116

PATIENT
  Age: 74 Year
  Sex: Male

DRUGS (68)
  1. FUROSEMIDE. [Concomitant]
     Active Substance: FUROSEMIDE
     Route: 065
     Dates: start: 20080228, end: 20080531
  2. ZYRTEC [Concomitant]
     Active Substance: CETIRIZINE HYDROCHLORIDE
     Route: 065
     Dates: start: 20080124, end: 20080124
  3. AZITHROMYCIN ANHYDROUS. [Concomitant]
     Active Substance: AZITHROMYCIN ANHYDROUS
     Route: 065
     Dates: start: 20080124, end: 20080124
  4. ZOTO-HC [Concomitant]
     Route: 065
     Dates: start: 20080124, end: 20080124
  5. CLARINEX [Concomitant]
     Active Substance: DESLORATADINE
     Route: 065
     Dates: start: 20080306, end: 20080512
  6. TAMSULOSIN [Concomitant]
     Active Substance: TAMSULOSIN
     Route: 065
     Dates: start: 20131107, end: 20131107
  7. MAGNESIUM [Concomitant]
     Active Substance: MAGNESIUM
     Route: 048
     Dates: start: 20170417
  8. DEXILANT [Suspect]
     Active Substance: DEXLANSOPRAZOLE
     Dosage: FOR MULTIPLE AND VARIOUS YEARS
     Route: 065
  9. PREVACID [Suspect]
     Active Substance: LANSOPRAZOLE
     Route: 065
     Dates: start: 20080114, end: 20081227
  10. AMLODIPINE BESYLATE. [Concomitant]
     Active Substance: AMLODIPINE BESYLATE
     Route: 065
     Dates: start: 20080124, end: 20080321
  11. FLUOCINONIDE. [Concomitant]
     Active Substance: FLUOCINONIDE
     Route: 065
     Dates: start: 20131202, end: 20140321
  12. VITAMIN D [Concomitant]
     Active Substance: VITAMIN D NOS
     Route: 065
     Dates: start: 20131227, end: 20131227
  13. GABAPENTIN. [Concomitant]
     Active Substance: GABAPENTIN
     Route: 065
     Dates: start: 20190719
  14. HYOSCYAMINE. [Concomitant]
     Active Substance: HYOSCYAMINE
     Route: 060
     Dates: start: 20190606
  15. NEXIUM [Suspect]
     Active Substance: ESOMEPRAZOLE MAGNESIUM
     Dosage: FOR MULTIPLE AND VARIOUS YEARS
     Route: 048
  16. NEXIUM [Suspect]
     Active Substance: ESOMEPRAZOLE MAGNESIUM
     Route: 048
     Dates: start: 1991
  17. LUMIGAN [Concomitant]
     Active Substance: BIMATOPROST
     Route: 065
     Dates: start: 20071228, end: 20080702
  18. CEFUROXIME AXETIL. [Concomitant]
     Active Substance: CEFUROXIME AXETIL
     Route: 065
     Dates: start: 20080813, end: 20080813
  19. ASTEPRO [Concomitant]
     Active Substance: AZELASTINE HYDROCHLORIDE
     Route: 065
     Dates: start: 20080923, end: 20090727
  20. SPIRIVA [Concomitant]
     Active Substance: TIOTROPIUM BROMIDE MONOHYDRATE
     Route: 065
     Dates: start: 20131002, end: 20131002
  21. CYCLOBENZAPRINE. [Concomitant]
     Active Substance: CYCLOBENZAPRINE
     Route: 065
     Dates: start: 20131217, end: 20131217
  22. CLOPIDOGREL [Concomitant]
     Active Substance: CLOPIDOGREL BISULFATE
     Route: 065
     Dates: start: 20190715
  23. LEVALBUTEROL. [Concomitant]
     Active Substance: LEVALBUTEROL
     Route: 065
     Dates: start: 20190718
  24. CEPHALEXIN. [Concomitant]
     Active Substance: CEPHALEXIN
     Route: 048
     Dates: start: 20071227, end: 20080107
  25. PENICILLIN [Concomitant]
     Active Substance: PENICILLIN
  26. TYLENOL [Concomitant]
     Active Substance: ACETAMINOPHEN
     Indication: PAIN
     Dosage: AS NEEDED
     Route: 065
  27. CIPROFLOXACIN. [Concomitant]
     Active Substance: CIPROFLOXACIN
     Route: 065
     Dates: start: 20131107, end: 20131107
  28. NEXIUM [Suspect]
     Active Substance: ESOMEPRAZOLE MAGNESIUM
     Dosage: VARIOUS YEARS AND DATES
     Route: 048
  29. PRILOSEC [Suspect]
     Active Substance: OMEPRAZOLE MAGNESIUM
     Route: 048
     Dates: start: 1991
  30. DEXILANT [Suspect]
     Active Substance: DEXLANSOPRAZOLE
     Route: 065
     Dates: start: 20190710
  31. PROTONIX [Suspect]
     Active Substance: PANTOPRAZOLE SODIUM
     Dosage: FOR MULTIPLE AND VARIOUS YEARS
     Route: 065
  32. HYDROXYZINE [Concomitant]
     Active Substance: HYDROXYZINE HYDROCHLORIDE
     Route: 048
     Dates: start: 20070302, end: 20080130
  33. TAMIFLU [Concomitant]
     Active Substance: OSELTAMIVIR PHOSPHATE
  34. TUMS [Concomitant]
     Active Substance: CALCIUM CARBONATE
     Dosage: AS NEEDED
     Route: 065
  35. DIOVAN HCT [Concomitant]
     Active Substance: HYDROCHLOROTHIAZIDE\VALSARTAN
     Route: 065
     Dates: start: 20071121, end: 20080216
  36. ANUCORT-HC [Concomitant]
     Active Substance: HYDROCORTISONE ACETATE
     Route: 065
     Dates: start: 20080201, end: 20080201
  37. HYDROCODONE BITARTRATE AND ACETAMINOPHEN [Concomitant]
     Active Substance: ACETAMINOPHEN\HYDROCODONE BITARTRATE
     Route: 065
     Dates: start: 20080813, end: 20080813
  38. MECLIZINE [Concomitant]
     Active Substance: MECLIZINE HYDROCHLORIDE
     Route: 065
     Dates: start: 20081209, end: 20091207
  39. CARAFATE [Concomitant]
     Active Substance: SUCRALFATE
     Route: 065
     Dates: start: 20190731
  40. ICAPS AREDS [Concomitant]
     Active Substance: MINERALS\VITAMINS
     Route: 065
     Dates: start: 20180417
  41. XYZAL [Concomitant]
     Active Substance: LEVOCETIRIZINE DIHYDROCHLORIDE
     Route: 048
     Dates: start: 20190731
  42. NEXIUM 24HR [Suspect]
     Active Substance: ESOMEPRAZOLE MAGNESIUM
     Dosage: FOR MULTIPLE AND VARIOUS YEARS
     Route: 048
  43. PRILOSEC OTC [Suspect]
     Active Substance: OMEPRAZOLE MAGNESIUM
     Dosage: FOR MULTIPLE AND VARIOUS YEARS
     Route: 048
  44. LIPITOR [Concomitant]
     Active Substance: ATORVASTATIN CALCIUM
     Route: 065
     Dates: start: 20070814, end: 20080806
  45. PEPCID AC [Concomitant]
     Active Substance: FAMOTIDINE
     Route: 065
  46. ZANTAC [Concomitant]
     Active Substance: RANITIDINE HYDROCHLORIDE
     Route: 065
  47. PROPOXYPHEN-APAF [Concomitant]
     Route: 065
     Dates: start: 20080411, end: 20080411
  48. MICARDIS [Concomitant]
     Active Substance: TELMISARTAN
     Route: 065
     Dates: start: 20080708, end: 20080906
  49. PREVACID [Suspect]
     Active Substance: LANSOPRAZOLE
     Dosage: FOR MULTIPLE AND VARIOUS YEARS
     Route: 065
  50. PREVACID [Suspect]
     Active Substance: LANSOPRAZOLE
     Route: 048
     Dates: start: 20071228
  51. PREVACID 24 HR [Suspect]
     Active Substance: LANSOPRAZOLE
     Dosage: FOR MULTIPLE AND VARIOUS YEARS
     Route: 065
  52. ALKA-SELTZER [Concomitant]
     Active Substance: ANHYDROUS CITRIC ACID\ASPIRIN\SODIUM BICARBONATE
     Dosage: AS NEEDED
     Route: 065
  53. TRIAMCINOLONE [Concomitant]
     Active Substance: TRIAMCINOLONE
     Route: 065
     Dates: start: 20080306, end: 20081113
  54. DICLOFENAC [Concomitant]
     Active Substance: DICLOFENAC
     Route: 065
     Dates: start: 20080715, end: 20080715
  55. AGGRENOX [Concomitant]
     Active Substance: ASPIRIN\DIPYRIDAMOLE
     Route: 065
     Dates: start: 20130826, end: 20140205
  56. NEXIUM [Suspect]
     Active Substance: ESOMEPRAZOLE MAGNESIUM
     Route: 048
     Dates: start: 20090102, end: 20090410
  57. LISINOPRIL. [Concomitant]
     Active Substance: LISINOPRIL
     Route: 065
     Dates: start: 20080401, end: 20080702
  58. CLONIDINE. [Concomitant]
     Active Substance: CLONIDINE
     Route: 065
     Dates: start: 20080228, end: 20080802
  59. BENADRYL [Concomitant]
     Active Substance: DIPHENHYDRAMINE HYDROCHLORIDE
     Indication: MULTIPLE ALLERGIES
     Dosage: AS NEEDED
     Route: 065
  60. BENADRYL [Concomitant]
     Active Substance: DIPHENHYDRAMINE HYDROCHLORIDE
     Indication: SLEEP DISORDER
     Dosage: AS NEEDED
     Route: 065
  61. PREDNISONE. [Concomitant]
     Active Substance: PREDNISONE
     Route: 065
     Dates: start: 20080306, end: 20080306
  62. FLUTICASONE. [Concomitant]
     Active Substance: FLUTICASONE
     Route: 065
     Dates: start: 20080923, end: 20080923
  63. VENTOLIN HFA [Concomitant]
     Active Substance: ALBUTEROL SULFATE
     Route: 065
     Dates: start: 20131217, end: 20131217
  64. DYMISTA [Concomitant]
     Active Substance: AZELASTINE HYDROCHLORIDE\FLUTICASONE PROPIONATE
     Route: 065
     Dates: start: 20140226, end: 20140829
  65. FERROUS SULFATE. [Concomitant]
     Active Substance: FERROUS SULFATE
     Route: 048
     Dates: start: 20190715
  66. VITAMIN E [Concomitant]
     Active Substance: .ALPHA.-TOCOPHEROL
     Route: 048
     Dates: start: 20180417
  67. PRILOSEC [Suspect]
     Active Substance: OMEPRAZOLE MAGNESIUM
     Dosage: FOR MULTIPLE AND VARIOUS YEARS
     Route: 048
  68. DEXILANT [Suspect]
     Active Substance: DEXLANSOPRAZOLE
     Dosage: VARIOUS YEARS AND DATES
     Route: 065

REACTIONS (6)
  - Renal injury [Unknown]
  - Hyperparathyroidism secondary [Unknown]
  - Rebound acid hypersecretion [Unknown]
  - Chronic kidney disease [Unknown]
  - Renal failure [Not Recovered/Not Resolved]
  - Nephrogenic anaemia [Unknown]

NARRATIVE: CASE EVENT DATE: 2008
